FAERS Safety Report 23736243 (Version 1)
Quarter: 2024Q2

REPORT INFORMATION
  Report Type: Spontaneous
  Country: JP (occurrence: JP)
  Receive Date: 20240412
  Receipt Date: 20240412
  Transmission Date: 20240716
  Serious: Yes (Other)
  Sender: FDA-Public Use
  Company Number: JP-PHATHOM PHARMACEUTICALS INC.-2024PHT00189

PATIENT
  Sex: Male

DRUGS (2)
  1. VONOPRAZAN FUMARATE [Suspect]
     Active Substance: VONOPRAZAN FUMARATE
     Indication: Product used for unknown indication
     Dosage: UNK
     Route: 048
  2. ASPIRIN\VONOPRAZAN FUMARATE [Suspect]
     Active Substance: ASPIRIN\VONOPRAZAN FUMARATE
     Indication: Cerebral infarction
     Dosage: UNK, 1X/DAY
     Route: 048

REACTIONS (1)
  - Internal haemorrhage [Unknown]
